FAERS Safety Report 4935918-4 (Version None)
Quarter: 2006Q1

REPORT INFORMATION
  Report Type: 
  Country: None (occurrence: None)
  Receive Date: 20060307
  Receipt Date: 20051228
  Transmission Date: 20060701
  Serious: Yes (Death)
  Sender: FDA-Public Use
  Company Number: DE-NOVOPROD-249620

PATIENT
  Age: 73 Year
  Sex: Female
  Weight: 90 kg

DRUGS (6)
  1. NOVOSEVEN [Suspect]
     Indication: CEREBRAL HAEMORRHAGE
     Dosage: 80 UG/KG, UNK
     Route: 042
     Dates: start: 20051218, end: 20051218
  2. ESIDRIX [Concomitant]
     Dosage: 1 TAB, QD
     Route: 048
  3. XANEF [Concomitant]
     Dosage: 20 MG, QD
     Route: 048
  4. NORVASC [Concomitant]
     Dosage: 10 MG, QD
     Route: 048
  5. DICLOFENAC DIETHYLAMINE [Concomitant]
     Dosage: 25 MG, UNK
     Route: 048
  6. POTASSIUM CHLORIDE [Concomitant]
     Dosage: 1 TAB, QD
     Route: 048

REACTIONS (2)
  - BRADYCARDIA [None]
  - CARDIAC ARREST [None]
